FAERS Safety Report 18590058 (Version 1)
Quarter: 2020Q4

REPORT INFORMATION
  Report Type: Spontaneous
  Country: US (occurrence: US)
  Receive Date: 20201208
  Receipt Date: 20201208
  Transmission Date: 20210114
  Serious: Yes (Hospitalization)
  Sender: FDA-Public Use
  Company Number: None

PATIENT
  Age: 71 Year
  Sex: Male
  Weight: 117 kg

DRUGS (1)
  1. BAMLANIVIMAB. [Suspect]
     Active Substance: BAMLANIVIMAB
     Indication: COVID-19
     Dosage: ?          OTHER FREQUENCY:ONE TIME;?
     Route: 041
     Dates: start: 20201207, end: 20201207

REACTIONS (6)
  - Tremor [None]
  - Nausea [None]
  - Oxygen saturation decreased [None]
  - Hyperhidrosis [None]
  - Confusional state [None]
  - Chills [None]

NARRATIVE: CASE EVENT DATE: 20201207
